FAERS Safety Report 9855339 (Version 1)
Quarter: 2014Q1

REPORT INFORMATION
  Report Type: Spontaneous
  Country: US (occurrence: None)
  Receive Date: 20140128
  Receipt Date: 20140128
  Transmission Date: 20141002
  Serious: Yes (Death)
  Sender: FDA-Public Use
  Company Number: 2014AP000409

PATIENT
  Age: 86 Year
  Sex: Female

DRUGS (7)
  1. QUETIAPINE FUMARATE [Suspect]
  2. TOPIRAMATE TABLETS [Suspect]
  3. AMLODIPINE BESYLATE TABLETS [Suspect]
  4. ACETAMINOPHEN [Suspect]
  5. BUPROPION HYDROCHLORIDE TABLETS [Suspect]
  6. DORZOLAMIDE HYDROCHLORIDE W/TIMOLOL MALEATE [Suspect]
  7. SIMVASTATIN [Suspect]

REACTIONS (1)
  - Death [None]
